FAERS Safety Report 10012112 (Version 2)
Quarter: 2014Q1

REPORT INFORMATION
  Report Type: Spontaneous
  Country: FR (occurrence: FR)
  Receive Date: 20140314
  Receipt Date: 20140314
  Transmission Date: 20141002
  Serious: Yes (Hospitalization, Disabling)
  Sender: FDA-Public Use
  Company Number: FR-009507513-1312FRA008753

PATIENT
  Sex: Male
  Weight: 70 kg

DRUGS (4)
  1. JANUMET [Suspect]
     Indication: TYPE 2 DIABETES MELLITUS
     Dosage: 2 DF, QD
     Route: 048
     Dates: start: 20091028
  2. TAHOR [Concomitant]
     Indication: DYSLIPIDAEMIA
     Dosage: 1 DF, QD
     Dates: start: 20060225
  3. LYRICA [Concomitant]
     Indication: NEUROPATHY PERIPHERAL
     Dosage: 2 DF, QD
     Dates: start: 20061012, end: 201209
  4. TARKA [Concomitant]
     Indication: HYPERTENSION
     Dosage: UNK
     Dates: start: 20060225

REACTIONS (9)
  - Movement disorder [Unknown]
  - Vomiting [Unknown]
  - Diarrhoea [Unknown]
  - Colitis ulcerative [Unknown]
  - Feeding disorder [Unknown]
  - Weight decreased [Unknown]
  - Vomiting [Recovering/Resolving]
  - Diarrhoea [Unknown]
  - Diarrhoea [Recovering/Resolving]
